FAERS Safety Report 8619855-X (Version None)
Quarter: 2012Q3

REPORT INFORMATION
  Report Type: 
  Country: None (occurrence: None)
  Receive Date: 20120824
  Receipt Date: 20120124
  Transmission Date: 20120928
  Serious: No
  Sender: FDA-Public Use
  Company Number: US-009507513-1208USA008970

PATIENT

DRUGS (5)
  1. FOLIC ACID [Concomitant]
  2. REBETOL [Suspect]
     Indication: HEPATITIS C
     Dosage: 1400 MG, QD
     Route: 048
  3. VICTRELIS [Suspect]
     Indication: HEPATITIS C
     Dosage: UNK UNK, TID
     Route: 048
  4. REBETOL [Suspect]
     Dosage: 1200 UNK, UNK
     Route: 048
     Dates: start: 20111201
  5. PEGINTERFERON ALFA-2A [Suspect]
     Indication: HEPATITIS C
     Dosage: 180 MICROGRAM, QW
     Route: 058
     Dates: start: 20111011

REACTIONS (3)
  - WHITE BLOOD CELL COUNT DECREASED [None]
  - FATIGUE [None]
  - RED BLOOD CELL COUNT DECREASED [None]
